FAERS Safety Report 20341947 (Version 1)
Quarter: 2022Q1

REPORT INFORMATION
  Report Type: Spontaneous
  Country: FR (occurrence: FR)
  Receive Date: 20220117
  Receipt Date: 20220117
  Transmission Date: 20220424
  Serious: Yes (Other)
  Sender: FDA-Public Use
  Company Number: None

PATIENT
  Age: 4 Year
  Sex: Female

DRUGS (1)
  1. AMOXICILLIN [Suspect]
     Active Substance: AMOXICILLIN
     Indication: Product prescribing error
     Dosage: 5 DOSAGE FORM, Q8H (5 CUILL?RES MESURES 3X/J)
     Route: 048
     Dates: start: 20211226

REACTIONS (4)
  - Abdominal pain [Unknown]
  - Diarrhoea [Unknown]
  - Incorrect dose administered [Unknown]
  - Product prescribing error [Unknown]

NARRATIVE: CASE EVENT DATE: 20211226
